FAERS Safety Report 12009626 (Version 1)
Quarter: 2016Q1

REPORT INFORMATION
  Report Type: Spontaneous
  Country: US (occurrence: None)
  Receive Date: 20160204
  Receipt Date: 20160204
  Transmission Date: 20160526
  Serious: Yes (Disabling)
  Sender: FDA-Public Use
  Company Number: None

PATIENT
  Age: 73 Year
  Sex: Male
  Weight: 68.04 kg

DRUGS (15)
  1. GABAPENTIN. [Concomitant]
     Active Substance: GABAPENTIN
  2. FINASTERIDE. [Concomitant]
     Active Substance: FINASTERIDE
  3. CETIRIZINE [Concomitant]
     Active Substance: CETIRIZINE HYDROCHLORIDE
  4. ALBUTERAL INHALER [Concomitant]
  5. MULTI-VIT [Concomitant]
     Active Substance: VITAMINS
  6. MUCINEX [Concomitant]
     Active Substance: GUAIFENESIN
  7. KRILL OIL [Concomitant]
     Active Substance: DIETARY SUPPLEMENT
  8. MECLAZINE [Concomitant]
  9. SYMBICORT [Concomitant]
     Active Substance: BUDESONIDE\FORMOTEROL FUMARATE DIHYDRATE
  10. LEVAFLOXACIN 50MG MR READY^S PHARMACEUTICALS [Suspect]
     Active Substance: LEVOFLOXACIN
     Indication: LUNG INFECTION
     Dosage: 1 PILL ONCE DAILY BY MOUTH
     Route: 048
     Dates: end: 20160103
  11. SIMVASTATIN. [Concomitant]
     Active Substance: SIMVASTATIN
  12. LISINIPRIL 5MG [Concomitant]
     Active Substance: LISINOPRIL
  13. OMEPRAZOLE. [Concomitant]
     Active Substance: OMEPRAZOLE
  14. SPIRIVA INHALER [Concomitant]
  15. VITAMIN B COMPLEX [Concomitant]
     Active Substance: CYANOCOBALAMIN\DEXPANTHENOL\NIACINAMIDE\PYRIDOXINE HYDROCHLORIDE\RIBOFLAVIN 5^-PHOSPHATE SODIUM\THIAMINE HYDROCHLORIDE\VITAMIN B COMPLEX

REACTIONS (2)
  - Tendon rupture [None]
  - Peripheral swelling [None]

NARRATIVE: CASE EVENT DATE: 20160103
